FAERS Safety Report 18158143 (Version 1)
Quarter: 2020Q3

REPORT INFORMATION
  Report Type: Spontaneous
  Country: CA (occurrence: CA)
  Receive Date: 20200817
  Receipt Date: 20200817
  Transmission Date: 20201103
  Serious: Yes (Hospitalization)
  Sender: FDA-Public Use
  Company Number: CA-SHIRE-CA202025938

PATIENT

DRUGS (6)
  1. VYVANSE [Suspect]
     Active Substance: LISDEXAMFETAMINE DIMESYLATE
     Indication: FOETAL EXPOSURE TIMING UNSPECIFIED
     Dosage: UNK
     Route: 064
  2. ABILIFY [Suspect]
     Active Substance: ARIPIPRAZOLE
     Indication: FOETAL EXPOSURE TIMING UNSPECIFIED
     Dosage: UNK, UNKNOWN
     Route: 064
  3. NALOXONE [Suspect]
     Active Substance: NALOXONE
     Indication: FOETAL EXPOSURE TIMING UNSPECIFIED
     Dosage: UNK, UNKNOWN
     Route: 064
  4. BUPRENORPHINE HYDROCHLORIDE. [Suspect]
     Active Substance: BUPRENORPHINE HYDROCHLORIDE
     Indication: FOETAL EXPOSURE TIMING UNSPECIFIED
     Dosage: UNK, UNKNOWN
     Route: 064
  5. NICOTINE. [Suspect]
     Active Substance: NICOTINE
     Indication: FOETAL EXPOSURE TIMING UNSPECIFIED
     Dosage: UNK, UNKNOWN
     Route: 064
  6. DIAZEPAM. [Suspect]
     Active Substance: DIAZEPAM
     Indication: FOETAL EXPOSURE TIMING UNSPECIFIED
     Dosage: UNK, UNKNOWN
     Route: 064

REACTIONS (2)
  - Foetal exposure during pregnancy [Unknown]
  - Premature baby [Unknown]
